FAERS Safety Report 5535538-7 (Version None)
Quarter: 2007Q4

REPORT INFORMATION
  Report Type: 
  Country: None (occurrence: None)
  Receive Date: 20071203
  Receipt Date: 20071203
  Transmission Date: 20080405
  Serious: No
  Sender: FDA-Public Use
  Company Number: None

PATIENT

DRUGS (1)
  1. PRILOSEC [Suspect]

REACTIONS (3)
  - COLLAPSE OF LUNG [None]
  - LUNG DISORDER [None]
  - PNEUMONIA [None]
